FAERS Safety Report 9202594 (Version 1)
Quarter: 2013Q2

REPORT INFORMATION
  Report Type: Spontaneous
  Country: US (occurrence: US)
  Receive Date: 20130401
  Receipt Date: 20130401
  Transmission Date: 20140414
  Serious: Yes (Other)
  Sender: FDA-Public Use
  Company Number: US-ELI_LILLY_AND_COMPANY-US201303009378

PATIENT
  Age: 84 Year
  Sex: Male
  Weight: 81.63 kg

DRUGS (1)
  1. HUMALOG LISPRO [Suspect]
     Dosage: UNK
     Route: 058

REACTIONS (5)
  - Hypoglycaemic seizure [Recovered/Resolved]
  - Blood glucose increased [Not Recovered/Not Resolved]
  - Viral infection [Unknown]
  - Dehydration [Unknown]
  - Nausea [Unknown]
